FAERS Safety Report 21708872 (Version 1)
Quarter: 2022Q4

REPORT INFORMATION
  Report Type: Spontaneous
  Country: US (occurrence: US)
  Receive Date: 20221210
  Receipt Date: 20221210
  Transmission Date: 20230113
  Serious: Yes (Death, Other)
  Sender: FDA-Public Use
  Company Number: US-AMGEN-USASP2022209421

PATIENT

DRUGS (2)
  1. BEVACIZUMAB [Suspect]
     Active Substance: BEVACIZUMAB
     Indication: Hepatocellular carcinoma
     Dosage: UNK
     Route: 065
  2. ATEZOLIZUMAB [Concomitant]
     Active Substance: ATEZOLIZUMAB
     Indication: Hepatocellular carcinoma
     Dosage: UNK

REACTIONS (16)
  - Hypothyroidism [Unknown]
  - Death [Fatal]
  - Hyperthyroidism [Unknown]
  - Pneumonitis [Unknown]
  - Anaphylactic reaction [Unknown]
  - Hepatocellular carcinoma [Unknown]
  - Pruritus [Unknown]
  - Liver function test increased [Unknown]
  - Rash [Unknown]
  - Pyrexia [Unknown]
  - Fatigue [Unknown]
  - Vomiting [Unknown]
  - Diarrhoea [Unknown]
  - Nausea [Unknown]
  - Therapy partial responder [Unknown]
  - Off label use [Unknown]
